FAERS Safety Report 16755129 (Version 2)
Quarter: 2019Q4

REPORT INFORMATION
  Report Type: Spontaneous
  Country: DE (occurrence: DE)
  Receive Date: 20190829
  Receipt Date: 20191230
  Transmission Date: 20200122
  Serious: Yes (Hospitalization, Disabling, Other)
  Sender: FDA-Public Use
  Company Number: DE-GLAXOSMITHKLINE-DE2019EME151893

PATIENT

DRUGS (3)
  1. VOLTAREN SCHMERZGEL [Suspect]
     Active Substance: DICLOFENAC DIETHYLAMINE
     Indication: DYSTONIA
     Dosage: UNK UNK, Z (2-3 TIMES DAILY WRAP)
     Dates: start: 20190510, end: 20190512
  2. JODID 200 [Concomitant]
     Active Substance: POTASSIUM IODIDE
     Indication: HYPOTHYROIDISM
     Dosage: 200 UG
  3. VITAMIN D [Concomitant]
     Active Substance: VITAMIN D NOS
     Indication: VITAMIN D DEFICIENCY
     Dosage: 1000 UG

REACTIONS (10)
  - Contusion [Unknown]
  - Wrong technique in product usage process [Unknown]
  - Circulatory collapse [Unknown]
  - Face injury [Unknown]
  - Concussion [Not Recovered/Not Resolved]
  - Eyelid injury [Not Recovered/Not Resolved]
  - Extra dose administered [Unknown]
  - Fall [Unknown]
  - Syncope [Not Recovered/Not Resolved]
  - Abdominal pain upper [Unknown]
